FAERS Safety Report 6984902 (Version 2)
Quarter: 2014Q2

REPORT INFORMATION
  Report Type: Spontaneous
  Country: US (occurrence: US)
  Receive Date: 20090501
  Receipt Date: 20140411
  Transmission Date: 20141212
  Serious: Yes (Hospitalization, Other)
  Sender: FDA-Public Use
  Company Number: US-ALEXION-A200900055

PATIENT
  Age: 46 Year
  Sex: Male

DRUGS (10)
  1. SOLIRIS [Suspect]
     Indication: PAROXYSMAL NOCTURNAL HAEMOGLOBINURIA
     Dosage: 600 MG, QWK
     Dates: start: 20080717, end: 20080806
  2. SOLIRIS [Suspect]
     Dosage: 900 MG, Q2WK
     Route: 042
     Dates: start: 20080813
  3. BENADRYL                           /00000402/ [Concomitant]
     Indication: PREMEDICATION
     Dosage: 25 MG, SINGLE
     Route: 042
     Dates: start: 20090115, end: 20090115
  4. DECADRON                           /00016001/ [Concomitant]
     Indication: PREMEDICATION
     Dosage: 10 MG, SINGLE
     Route: 042
     Dates: start: 20090115, end: 20090115
  5. PEPCID                             /00706001/ [Concomitant]
     Indication: PREMEDICATION
     Dosage: 20 MG, SINGLE
     Route: 042
     Dates: start: 20090115, end: 20090115
  6. METFORMIN [Concomitant]
     Indication: DIABETES MELLITUS
     Dosage: 500 MG, QD
     Route: 048
  7. LISINOPRIL [Concomitant]
     Dosage: 2.5 MG, QD
     Route: 048
  8. PROTONIX                           /01263201/ [Concomitant]
     Dosage: 40 MG, QD
     Route: 048
  9. MULTIVITAMIN                       /00831701/ [Concomitant]
     Dosage: UNK
     Route: 048
  10. FERROUS SULFATE [Concomitant]
     Dosage: UNK
     Route: 048

REACTIONS (8)
  - Hypersensitivity [Recovered/Resolved]
  - Swollen tongue [Unknown]
  - Aphasia [Unknown]
  - Dyskinesia [Unknown]
  - Feeling cold [Not Recovered/Not Resolved]
  - Pruritus [Unknown]
  - Crying [Unknown]
  - Erythema [Unknown]
